FAERS Safety Report 24044682 (Version 1)
Quarter: 2024Q3

REPORT INFORMATION
  Report Type: Spontaneous
  Country: CH (occurrence: CH)
  Receive Date: 20240703
  Receipt Date: 20240703
  Transmission Date: 20241016
  Serious: Yes (Other)
  Sender: AMGEN
  Company Number: CH-AMGEN-CHESP2024129286

PATIENT
  Age: 72 Year
  Sex: Female

DRUGS (1)
  1. PROLIA [Suspect]
     Active Substance: DENOSUMAB
     Indication: Product used for unknown indication
     Dosage: UNK
     Route: 065
     Dates: start: 2015

REACTIONS (2)
  - Osteoporotic fracture [Unknown]
  - Chronic kidney disease [Unknown]
